FAERS Safety Report 17454313 (Version 1)
Quarter: 2020Q1

REPORT INFORMATION
  Report Type: Spontaneous
  Country: US (occurrence: US)
  Receive Date: 20200225
  Receipt Date: 20200225
  Transmission Date: 20200409
  Serious: No
  Sender: FDA-Public Use
  Company Number: US-BIOGEN-2020BI00823326

PATIENT
  Sex: Female

DRUGS (1)
  1. TECFIDERA [Suspect]
     Active Substance: DIMETHYL FUMARATE
     Indication: MULTIPLE SCLEROSIS
     Route: 048
     Dates: start: 20191226, end: 20191230

REACTIONS (6)
  - Flushing [Recovered/Resolved]
  - Hyperhidrosis [Unknown]
  - Hot flush [Recovered/Resolved]
  - Rash [Recovered/Resolved]
  - Formication [Unknown]
  - Pruritus [Unknown]
